FAERS Safety Report 9269255 (Version 2)
Quarter: 2013Q3

REPORT INFORMATION
  Report Type: Spontaneous
  Country: US (occurrence: US)
  Receive Date: 20130503
  Receipt Date: 20130715
  Transmission Date: 20140515
  Serious: No
  Sender: FDA-Public Use
  Company Number: US-PFIZER INC-2013132988

PATIENT
  Age: 20 Year
  Sex: Female
  Weight: 56.4 kg

DRUGS (1)
  1. ELELYSO [Suspect]
     Indication: GAUCHER^S DISEASE
     Dosage: 3600 UNITS EVERY 2 WEEKS
     Route: 042
     Dates: start: 20130117

REACTIONS (2)
  - Fatigue [Unknown]
  - Sluggishness [Unknown]
